FAERS Safety Report 17982662 (Version 3)
Quarter: 2023Q2

REPORT INFORMATION
  Report Type: Spontaneous
  Country: US (occurrence: US)
  Receive Date: 20200706
  Receipt Date: 20230526
  Transmission Date: 20230721
  Serious: Yes (Other)
  Sender: FDA-Public Use
  Company Number: US-UCBSA-2020023158

PATIENT
  Sex: Male

DRUGS (2)
  1. CIMZIA [Suspect]
     Active Substance: CERTOLIZUMAB PEGOL
     Indication: Rheumatoid arthritis
     Dosage: 200 MILLIGRAM, EV 2 WEEKS(QOW)
     Route: 058
     Dates: start: 20170428, end: 202005
  2. MEDROL [Concomitant]
     Active Substance: METHYLPREDNISOLONE

REACTIONS (4)
  - Osteomyelitis [Unknown]
  - Arthritis infective [Unknown]
  - Localised infection [Unknown]
  - Skin infection [Unknown]
